FAERS Safety Report 21531389 (Version 1)
Quarter: 2022Q4

REPORT INFORMATION
  Report Type: Spontaneous
  Country: US (occurrence: None)
  Receive Date: 20221028
  Receipt Date: 20221028
  Transmission Date: 20230113
  Serious: No
  Sender: FDA-Public Use
  Company Number: None

PATIENT
  Sex: Female
  Weight: 59.42 kg

DRUGS (11)
  1. IBRANCE [Suspect]
     Active Substance: PALBOCICLIB
     Indication: Breast cancer female
     Dosage: OTHER FREQUENCY : 21 D ON, 7 D OFF;?
     Route: 048
     Dates: start: 202111
  2. CALCIUM CARBONATE [Concomitant]
     Active Substance: CALCIUM CARBONATE
  3. CHOLECALCIFEROL [Concomitant]
     Active Substance: CHOLECALCIFEROL
  4. DOCUSATE SODIUM [Concomitant]
     Active Substance: DOCUSATE SODIUM
  5. LACTOBACILLUS ACIDOPHILUS [Concomitant]
     Active Substance: LACTOBACILLUS ACIDOPHILUS
  6. LISINOPRIL [Concomitant]
     Active Substance: LISINOPRIL
  7. METAMUCIL [Concomitant]
     Active Substance: PLANTAGO SEED
  8. MULTIVITAMINS/FLUORIDE (WITH ADE) [Concomitant]
  9. OXYCODONE [Concomitant]
     Active Substance: OXYCODONE
  10. SIMVASTATIN [Concomitant]
     Active Substance: SIMVASTATIN
  11. XARELTO [Concomitant]
     Active Substance: RIVAROXABAN

REACTIONS (2)
  - White blood cell count decreased [None]
  - Therapy interrupted [None]
